FAERS Safety Report 6828700-4 (Version None)
Quarter: 2010Q3

REPORT INFORMATION
  Report Type: 
  Country: None (occurrence: None)
  Receive Date: 20100709
  Receipt Date: 20070217
  Transmission Date: 20110219
  Serious: No
  Sender: FDA-Public Use
  Company Number: US-PFIZER INC-2007013290

PATIENT
  Sex: Female
  Weight: 58.97 kg

DRUGS (9)
  1. CHANTIX [Suspect]
     Indication: SMOKING CESSATION THERAPY
     Dates: start: 20070209
  2. TOPROL-XL [Concomitant]
  3. ACETYLSALICYLIC ACID [Concomitant]
  4. CALCIUM CARBONATE [Concomitant]
  5. NEXIUM [Concomitant]
  6. ALL OTHER THERAPEUTIC PRODUCTS [Concomitant]
  7. BETHANECHOL [Concomitant]
  8. CYMBALTA [Concomitant]
  9. HYDROCODONE BITARTRATE [Concomitant]

REACTIONS (1)
  - NAUSEA [None]
